FAERS Safety Report 10569923 (Version 1)
Quarter: 2014Q4

REPORT INFORMATION
  Report Type: Spontaneous
  Country: US (occurrence: None)
  Receive Date: 20141106
  Receipt Date: 20141106
  Transmission Date: 20150529
  Serious: Yes (Life-Threatening, Hospitalization)
  Sender: FDA-Public Use
  Company Number: None

PATIENT
  Age: 29 Year
  Sex: Female
  Weight: 92.53 kg

DRUGS (7)
  1. OMEPRAZOLE. [Concomitant]
     Active Substance: OMEPRAZOLE
  2. BENZONATATE. [Suspect]
     Active Substance: BENZONATATE
     Indication: PULMONARY CONGESTION
     Dosage: BY MOUTH
     Route: 048
     Dates: start: 20140803, end: 20140805
  3. PREDNISONE. [Concomitant]
     Active Substance: PREDNISONE
  4. ALBOUR [Concomitant]
  5. ADVAIR HFA [Concomitant]
     Active Substance: FLUTICASONE PROPIONATE\SALMETEROL XINAFOATE
  6. METFORMIN [Concomitant]
     Active Substance: METFORMIN HYDROCHLORIDE
  7. BENZONATATE. [Suspect]
     Active Substance: BENZONATATE
     Indication: COUGH
     Dosage: BY MOUTH
     Route: 048
     Dates: start: 20140803, end: 20140805

REACTIONS (3)
  - Chest discomfort [None]
  - Dyspnoea [None]
  - Sensory loss [None]

NARRATIVE: CASE EVENT DATE: 20140804
